FAERS Safety Report 9666244 (Version 5)
Quarter: 2014Q1

REPORT INFORMATION
  Report Type: Spontaneous
  Country: PT (occurrence: PT)
  Receive Date: 20131104
  Receipt Date: 20140311
  Transmission Date: 20141002
  Serious: Yes (Hospitalization)
  Sender: FDA-Public Use
  Company Number: PT-SA-2013SA110918

PATIENT
  Age: 44 Year
  Sex: Female

DRUGS (23)
  1. DOCETAXEL [Suspect]
     Indication: HER-2 POSITIVE BREAST CANCER
     Route: 042
     Dates: start: 20131002, end: 20131002
  2. DOCETAXEL [Suspect]
     Indication: HER-2 POSITIVE BREAST CANCER
     Route: 042
     Dates: start: 20131030
  3. PERTUZUMAB [Suspect]
     Indication: HER-2 POSITIVE BREAST CANCER
     Route: 042
     Dates: start: 20131001, end: 20131001
  4. PERTUZUMAB [Suspect]
     Indication: HER-2 POSITIVE BREAST CANCER
     Route: 042
     Dates: start: 20131030
  5. TRASTUZUMAB [Suspect]
     Indication: HER-2 POSITIVE BREAST CANCER
     Route: 042
     Dates: start: 20131001, end: 20131001
  6. TRASTUZUMAB [Suspect]
     Indication: HER-2 POSITIVE BREAST CANCER
     Route: 042
     Dates: start: 20131030
  7. EUTIROX [Concomitant]
     Dates: start: 2007
  8. PARACETAMOL [Concomitant]
     Indication: PAIN
     Dates: start: 20130930
  9. ARCOXIA [Concomitant]
     Indication: PAIN
     Dates: start: 20130930
  10. METOCLOPRAMIDE [Concomitant]
     Indication: NAUSEA
     Dates: start: 20130930
  11. PREDNISOLONE [Concomitant]
     Dates: start: 20130930
  12. LORAZEPAM [Concomitant]
     Indication: INSOMNIA
     Dates: start: 20130930
  13. MYCOSTATIN [Concomitant]
     Indication: MUCOSAL INFLAMMATION
     Dates: start: 20130930
  14. OMEPRAZOLE [Concomitant]
     Indication: PROPHYLAXIS
     Dates: start: 20130930
  15. BENZYDAMINE [Concomitant]
     Indication: MUCOSAL INFLAMMATION
     Dosage: DOSE:1.5 MILLIGRAM(S)/MILLILITRE
     Dates: start: 20130930
  16. SYNALAR [Concomitant]
     Route: 054
     Dates: start: 20131031, end: 20131103
  17. DIOSMIN [Concomitant]
     Dates: start: 20131031, end: 20131103
  18. TRAMAL [Concomitant]
     Dates: start: 20131101
  19. HALIBUT-LIVER OIL [Concomitant]
     Dates: start: 20131210, end: 20140107
  20. AMOXICILLIN/CLAVULANIC ACID [Concomitant]
     Dosage: DOSE: 875/125 MG
     Dates: start: 20131213, end: 20131220
  21. LOPERAMIDE [Concomitant]
     Dates: start: 20140107
  22. DIPYRONE [Concomitant]
     Indication: PAIN PROPHYLAXIS
  23. SCOPOLAMINE BUTYLBROMIDE [Concomitant]
     Indication: PROPHYLAXIS

REACTIONS (1)
  - Systemic inflammatory response syndrome [Recovered/Resolved]
